FAERS Safety Report 6747616-5 (Version None)
Quarter: 2010Q2

REPORT INFORMATION
  Report Type: 
  Country: None (occurrence: None)
  Receive Date: 20100528
  Receipt Date: 20100517
  Transmission Date: 20101027
  Serious: Yes (Hospitalization)
  Sender: FDA-Public Use
  Company Number: PHHY2010IT31988

PATIENT
  Sex: Female

DRUGS (6)
  1. RASILEZ [Suspect]
     Indication: ESSENTIAL HYPERTENSION
     Dosage: 300 MG
     Route: 048
     Dates: start: 20100301
  2. TENORMIN [Concomitant]
     Dosage: 100 MG
  3. TRIATEC [Concomitant]
     Dosage: 10 MG
     Route: 048
  4. ASPIRIN [Concomitant]
     Dosage: 100 MG
     Route: 048
  5. CARDURA [Concomitant]
     Dosage: 4 MG
     Route: 048
  6. TORVAST [Concomitant]
     Dosage: 20 MG
     Route: 048

REACTIONS (7)
  - ABDOMINAL PAIN UPPER [None]
  - LEUKOCYTOSIS [None]
  - NAUSEA [None]
  - PANCREATITIS ACUTE [None]
  - PROTEINURIA [None]
  - VERTIGO [None]
  - VOMITING [None]
